FAERS Safety Report 8088425-7 (Version None)
Quarter: 2012Q1

REPORT INFORMATION
  Report Type: 
  Country: None (occurrence: None)
  Receive Date: 20120128
  Receipt Date: 20110608
  Transmission Date: 20120608
  Serious: No
  Sender: FDA-Public Use
  Company Number: US-ABBOTT-11P-163-0730244-00

PATIENT
  Age: 28 Year
  Sex: Male

DRUGS (3)
  1. HUMIRA [Suspect]
     Dosage: 80 MG ON DAY 15
  2. HUMIRA [Suspect]
     Indication: CROHN'S DISEASE
     Dosage: 23-MAY-2011
     Dates: start: 20110523, end: 20110523
  3. PENTASA [Concomitant]
     Indication: PRODUCT USED FOR UNKNOWN INDICATION

REACTIONS (4)
  - PAIN OF SKIN [None]
  - SKIN SWELLING [None]
  - ERYTHEMA [None]
  - DEVICE MALFUNCTION [None]
